FAERS Safety Report 12898907 (Version 1)
Quarter: 2016Q4

REPORT INFORMATION
  Report Type: Report from Study
  Country: GR (occurrence: GR)
  Receive Date: 20161101
  Receipt Date: 20161101
  Transmission Date: 20170207
  Serious: Yes (Disabling)
  Sender: FDA-Public Use
  Company Number: GR-ROCHE-1848909

PATIENT
  Age: 66 Year
  Sex: Female

DRUGS (6)
  1. TRIATEC (GREECE) [Concomitant]
     Indication: HYPERTENSION
     Dosage: UNK
     Route: 065
     Dates: start: 20040703
  2. LANTUS [Concomitant]
     Active Substance: INSULIN GLARGINE
     Indication: DIABETES MELLITUS
     Dosage: UNK
     Route: 065
     Dates: start: 20130606
  3. RANIBIZUMAB [Suspect]
     Active Substance: RANIBIZUMAB
     Dosage: PRN
     Route: 031
     Dates: start: 20150527
  4. ATROSTAT [Concomitant]
     Indication: HYPERCHOLESTEROLAEMIA
     Dosage: UNK
     Route: 065
     Dates: start: 20100320
  5. APRIDA [Concomitant]
  6. RANIBIZUMAB [Suspect]
     Active Substance: RANIBIZUMAB
     Indication: NEOVASCULAR AGE-RELATED MACULAR DEGENERATION
     Dosage: PRN
     Route: 031
     Dates: start: 20131016

REACTIONS (1)
  - Macular hole [Recovered/Resolved with Sequelae]

NARRATIVE: CASE EVENT DATE: 20150622
